FAERS Safety Report 7802056-2 (Version None)
Quarter: 2011Q4

REPORT INFORMATION
  Report Type: 
  Country: None (occurrence: None)
  Receive Date: 20111007
  Receipt Date: 20110923
  Transmission Date: 20120403
  Serious: Yes (Other)
  Sender: FDA-Public Use
  Company Number: US-BAYER-2011-074971

PATIENT

DRUGS (1)
  1. YAZ [Suspect]
     Dosage: UNK
     Dates: end: 20100701

REACTIONS (3)
  - PAIN [None]
  - GALLBLADDER INJURY [None]
  - INJURY [None]
